FAERS Safety Report 5525303-9 (Version None)
Quarter: 2007Q4

REPORT INFORMATION
  Report Type: 
  Country: None (occurrence: None)
  Receive Date: 20071126
  Receipt Date: 20070727
  Transmission Date: 20080405
  Serious: Yes (Other)
  Sender: FDA-Public Use
  Company Number: US-ASTRAZENECA-2007UW01958

PATIENT
  Age: 59 Year
  Sex: Female
  Weight: 70.5 kg

DRUGS (21)
  1. SEROQUEL [Suspect]
     Indication: SLEEP DISORDER
     Dosage: 100 MG TO 200 MG
     Route: 048
     Dates: start: 20020823, end: 20060323
  2. SEROQUEL [Suspect]
     Indication: DEPRESSION
     Dosage: 100 MG TO 200 MG
     Route: 048
     Dates: start: 20020823, end: 20060323
  3. EFFEXOR [Concomitant]
     Dates: start: 20061101
  4. NEURONTIN [Concomitant]
  5. ATENOL/CHLORIDE [Concomitant]
  6. PREMARIN [Concomitant]
  7. REMERON [Concomitant]
  8. CELEXA [Concomitant]
  9. ACETAMINOPHEN AND HYDROCODONE BITARTRATE [Concomitant]
  10. LEVOXYL [Concomitant]
  11. CEPHALEXIN [Concomitant]
  12. CLONAZEPAM [Concomitant]
  13. PRILOSEC [Concomitant]
  14. XENICAL [Concomitant]
  15. DIFLUCAN [Concomitant]
  16. PAROXETINE [Concomitant]
  17. KETOCONAZOLE [Concomitant]
  18. QUININE SULFATE [Concomitant]
  19. GABAPENTIN [Concomitant]
  20. CARBIDOPA/LEVO [Concomitant]
  21. AMBIEN [Concomitant]

REACTIONS (5)
  - HEADACHE [None]
  - HEPATIC STEATOSIS [None]
  - HEPATOCELLULAR DAMAGE [None]
  - OEDEMA PERIPHERAL [None]
  - TYPE 2 DIABETES MELLITUS [None]
